FAERS Safety Report 9709325 (Version 1)
Quarter: 2013Q4

REPORT INFORMATION
  Report Type: Spontaneous
  Country: DK (occurrence: DK)
  Receive Date: 20131125
  Receipt Date: 20131125
  Transmission Date: 20140711
  Serious: Yes (Death)
  Sender: FDA-Public Use
  Company Number: DK-ROCHE-1304473

PATIENT
  Sex: Female

DRUGS (2)
  1. XELODA [Suspect]
     Indication: RECTAL CANCER STAGE III
     Route: 065
     Dates: start: 20100421
  2. OXALIPLATIN [Concomitant]
     Route: 042
     Dates: start: 20100421, end: 20100421

REACTIONS (1)
  - Arrhythmia [Fatal]
